FAERS Safety Report 6518111-3 (Version None)
Quarter: 2009Q4

REPORT INFORMATION
  Report Type: 
  Country: None (occurrence: None)
  Receive Date: 20091223
  Receipt Date: 20091223
  Transmission Date: 20100525
  Serious: Yes (Hospitalization)
  Sender: FDA-Public Use
  Company Number: None

PATIENT
  Sex: Male
  Weight: 72.6 kg

DRUGS (5)
  1. PEG-L-ASPARAGINASE (K-H) [Suspect]
     Dosage: 2500 IU
  2. VINCRISTINE SULFATE [Suspect]
     Dosage: 6 MG
  3. CYTARABINE [Suspect]
     Dosage: 70 MG
  4. DAUNORUBICIN HCL [Suspect]
     Dosage: 132 MG
  5. METHOTREXATE [Suspect]
     Dosage: 15 MG

REACTIONS (5)
  - ACTIVATED PARTIAL THROMBOPLASTIN TIME PROLONGED [None]
  - BLOOD FIBRINOGEN DECREASED [None]
  - DEEP VEIN THROMBOSIS [None]
  - PROTHROMBIN TIME PROLONGED [None]
  - PULMONARY EMBOLISM [None]
